FAERS Safety Report 25818939 (Version 1)
Quarter: 2025Q3

REPORT INFORMATION
  Report Type: Report from Study
  Country: US (occurrence: US)
  Receive Date: 20250918
  Receipt Date: 20250918
  Transmission Date: 20251020
  Serious: Yes (Hospitalization, Other)
  Sender: BRISTOL-MYERS SQUIBB COMPANY
  Company Number: US-BRISTOL-MYERS SQUIBB COMPANY-2025-044610

PATIENT
  Age: 77 Year
  Sex: Female

DRUGS (18)
  1. CAMZYOS [Suspect]
     Active Substance: MAVACAMTEN
     Indication: Hypertrophic cardiomyopathy
     Dates: start: 20231018
  2. METOPROLOL [Concomitant]
     Active Substance: METOPROLOL
     Indication: Product used for unknown indication
     Dates: start: 20220416, end: 20220914
  3. METOPROLOL [Concomitant]
     Active Substance: METOPROLOL
     Dates: start: 20220914, end: 20230310
  4. METOPROLOL [Concomitant]
     Active Substance: METOPROLOL
     Dates: start: 20230310, end: 20240229
  5. METOPROLOL [Concomitant]
     Active Substance: METOPROLOL
     Dates: start: 20240229
  6. XANAX [Concomitant]
     Active Substance: ALPRAZOLAM
     Indication: Anxiety
     Dates: start: 20230717
  7. DULOXETINE [Concomitant]
     Active Substance: DULOXETINE
     Indication: Anxiety
     Dates: start: 20230120
  8. EZETIMIBE [Concomitant]
     Active Substance: EZETIMIBE
     Indication: Coronary artery disease
     Dates: start: 20230310
  9. FAMOTIDINE [Concomitant]
     Active Substance: FAMOTIDINE
     Indication: Gastrooesophageal reflux disease
     Dates: start: 20240112, end: 20240716
  10. FAMOTIDINE [Concomitant]
     Active Substance: FAMOTIDINE
     Dates: start: 20240716
  11. GABAPENTIN [Concomitant]
     Active Substance: GABAPENTIN
     Indication: Pain
     Dates: start: 20240111
  12. ICOSAPENT ETHYL [Concomitant]
     Active Substance: ICOSAPENT ETHYL
     Indication: Coronary artery disease
     Dates: start: 20230310
  13. ONDANSETRON [Concomitant]
     Active Substance: ONDANSETRON
     Indication: Gastrooesophageal reflux disease
     Dates: start: 20230405
  14. PANTOPRAZOLE [Concomitant]
     Active Substance: PANTOPRAZOLE
     Indication: Gastrooesophageal reflux disease
     Dates: start: 20230405
  15. VALSARTAN [Concomitant]
     Active Substance: VALSARTAN
     Indication: Coronary artery disease
     Dates: start: 20240229
  16. ZETIA [Concomitant]
     Active Substance: EZETIMIBE
     Indication: Hyperlipidaemia
     Dates: start: 20240603
  17. VASCEPA [Concomitant]
     Active Substance: ICOSAPENT ETHYL
     Indication: Coronary artery disease
     Dates: start: 20230310
  18. CARAFATE [Concomitant]
     Active Substance: SUCRALFATE
     Indication: Gastrooesophageal reflux disease
     Dates: start: 20210901

REACTIONS (4)
  - Haemorrhagic stroke [Recovered/Resolved]
  - Fibula fracture [Recovered/Resolved]
  - Headache [Recovered/Resolved]
  - Colitis [Not Recovered/Not Resolved]

NARRATIVE: CASE EVENT DATE: 20250122
